FAERS Safety Report 5401933-X (Version None)
Quarter: 2007Q3

REPORT INFORMATION
  Report Type: 
  Country: None (occurrence: None)
  Receive Date: 20070726
  Receipt Date: 20070627
  Transmission Date: 20080115
  Serious: Yes (Death)
  Sender: FDA-Public Use
  Company Number: 6035076

PATIENT
  Age: 89 Year
  Sex: Male

DRUGS (3)
  1. NICARDIPINE (INTRAVENOUS INFUSION) (NICARDIPINE) [Suspect]
     Indication: DRUG USE FOR UNKNOWN INDICATION
     Dosage: 60 MG (60 MG, 1 IN 1 ONCE) INTRAVENOUS (NOT OTHERWISE SPECIFIED)
     Route: 042
  2. GLUCOSE (GLUCOSE) [Concomitant]
  3. ANTI-PARKINSON AGENTS [Concomitant]

REACTIONS (10)
  - BLOOD GLUCOSE DECREASED [None]
  - DRUG ADMINISTRATION ERROR [None]
  - HYPOTENSION [None]
  - MALNUTRITION [None]
  - OVERDOSE [None]
  - OXYGEN SATURATION DECREASED [None]
  - POOR PERIPHERAL CIRCULATION [None]
  - RESPIRATORY ARREST [None]
  - RESUSCITATION [None]
  - SUDDEN DEATH [None]
